FAERS Safety Report 8171927-2 (Version None)
Quarter: 2012Q1

REPORT INFORMATION
  Report Type: 
  Country: None (occurrence: None)
  Receive Date: 20120228
  Receipt Date: 20120223
  Transmission Date: 20120608
  Serious: Yes (Death)
  Sender: FDA-Public Use
  Company Number: AT-ROCHE-1043052

PATIENT
  Age: 68 Year
  Sex: Male

DRUGS (2)
  1. ROFERON-A [Suspect]
     Indication: PRODUCT USED FOR UNKNOWN INDICATION
  2. AVASTIN [Suspect]
     Indication: METASTATIC RENAL CELL CARCINOMA
     Route: 042
     Dates: end: 20120214

REACTIONS (1)
  - COMPLETED SUICIDE [None]
